FAERS Safety Report 4564746-7 (Version None)
Quarter: 2005Q1

REPORT INFORMATION
  Report Type: 
  Country: None (occurrence: None)
  Receive Date: 20050128
  Receipt Date: 20050126
  Transmission Date: 20050727
  Serious: Yes (Death)
  Sender: FDA-Public Use
  Company Number: US-ABBOTT-05P-163-0288308-02

PATIENT
  Sex: Male

DRUGS (8)
  1. RITONAVIR SOFT GELATIN CAPSULES [Suspect]
     Indication: HIV INFECTION
     Route: 048
     Dates: start: 20030702, end: 20030829
  2. TIPRANAVIR [Concomitant]
     Indication: HIV INFECTION
     Route: 048
     Dates: start: 20030702, end: 20030829
  3. TENOFOVIR [Concomitant]
     Indication: HIV INFECTION
     Dates: start: 20031011
  4. TENOFOVIR [Concomitant]
     Dates: start: 20020715, end: 20030829
  5. NEVIRAPINE [Concomitant]
     Indication: HIV INFECTION
     Dates: start: 20031011
  6. NEVIRAPINE [Concomitant]
     Dates: start: 20030702, end: 20030829
  7. ENFUVIRTIDE [Concomitant]
     Indication: HIV INFECTION
     Dates: start: 20031011
  8. ENFUVIRTIDE [Concomitant]
     Dates: start: 20030702, end: 20030829

REACTIONS (1)
  - DEATH [None]
